FAERS Safety Report 5580078-2 (Version None)
Quarter: 2007Q4

REPORT INFORMATION
  Report Type: 
  Country: None (occurrence: None)
  Receive Date: 20071228
  Receipt Date: 20071218
  Transmission Date: 20080405
  Serious: Yes (Hospitalization)
  Sender: FDA-Public Use
  Company Number: LTI2007A00360

PATIENT
  Age: 67 Year
  Sex: Female

DRUGS (1)
  1. COMPETACT (PIOGLITAZONE HYDROCHLORIDE, METFORMIN HYDROCHLORIDE) [Suspect]
     Indication: TYPE 2 DIABETES MELLITUS
     Route: 048

REACTIONS (4)
  - MALAISE [None]
  - NAUSEA [None]
  - SYNCOPE [None]
  - VOMITING [None]
